FAERS Safety Report 4367140-7 (Version None)
Quarter: 2004Q2

REPORT INFORMATION
  Report Type: 
  Country: None (occurrence: None)
  Receive Date: 20040528
  Receipt Date: 20040521
  Transmission Date: 20050107
  Serious: Yes (Hospitalization)
  Sender: FDA-Public Use
  Company Number: 2004AC00097

PATIENT
  Age: 29 Year
  Sex: Female

DRUGS (3)
  1. ALBUTEROL SULFATE [Suspect]
     Indication: ASTHMA
     Route: 065
  2. BECLOMETHASONE DIPROPIONATE [Suspect]
     Route: 065
  3. OMEPRAZOLE [Suspect]
     Dosage: 20MG PER DAY
     Route: 048

REACTIONS (7)
  - ABDOMINAL PAIN UPPER [None]
  - ANOREXIA [None]
  - GASTROENTERITIS EOSINOPHILIC [None]
  - HEPATITIS [None]
  - JAUNDICE [None]
  - VOMITING [None]
  - WEIGHT DECREASED [None]
